FAERS Safety Report 19477424 (Version 1)
Quarter: 2021Q2

REPORT INFORMATION
  Report Type: Spontaneous
  Country: US (occurrence: US)
  Receive Date: 20210630
  Receipt Date: 20210630
  Transmission Date: 20210717
  Serious: No
  Sender: FDA-Public Use
  Company Number: US-PFIZER INC-2021556561

PATIENT
  Age: 35 Year
  Sex: Female

DRUGS (2)
  1. BRAFTOVI [Suspect]
     Active Substance: ENCORAFENIB
     Dosage: UNK
     Dates: start: 201811
  2. MEKTOVI [Suspect]
     Active Substance: BINIMETINIB
     Dosage: UNKNOWN
     Dates: start: 201811

REACTIONS (4)
  - Hypoaesthesia [Unknown]
  - Abdominal pain upper [Unknown]
  - Paraesthesia [Unknown]
  - Nausea [Unknown]
